FAERS Safety Report 9702598 (Version 2)
Quarter: 2014Q2

REPORT INFORMATION
  Report Type: Spontaneous
  Country: US (occurrence: US)
  Receive Date: 20131121
  Receipt Date: 20140505
  Transmission Date: 20141212
  Serious: No
  Sender: FDA-Public Use
  Company Number: US-B.I. PHARMACEUTICALS,INC./RIDGEFIELD-2013-BI-36980BP

PATIENT
  Age: 71 Year
  Sex: Female

DRUGS (1)
  1. COMBIVENT [Suspect]
     Indication: BRONCHITIS
     Dosage: STRENGTH: 20 MCG / 100 MCG; DAILY DOSE: 240 MCG/ 1200 MCG
     Route: 055
     Dates: start: 20131031

REACTIONS (2)
  - Overdose [Not Recovered/Not Resolved]
  - Off label use [Not Recovered/Not Resolved]
